FAERS Safety Report 20683814 (Version 1)
Quarter: 2022Q2

REPORT INFORMATION
  Report Type: Spontaneous
  Country: US (occurrence: US)
  Receive Date: 20220407
  Receipt Date: 20220407
  Transmission Date: 20220720
  Serious: Yes (Life-Threatening, Hospitalization)
  Sender: FDA-Public Use
  Company Number: US-MYLANLABS-2022M1025310

PATIENT
  Age: 73 Year
  Sex: Female

DRUGS (1)
  1. APIXABAN [Suspect]
     Active Substance: APIXABAN
     Indication: Product used for unknown indication
     Dosage: UNK
     Route: 065

REACTIONS (4)
  - Shock [Recovered/Resolved]
  - Pericardial effusion [Recovered/Resolved]
  - Cardiac tamponade [Recovered/Resolved]
  - Haemorrhage [Recovered/Resolved]
